FAERS Safety Report 8837920 (Version 2)
Quarter: 2012Q4

REPORT INFORMATION
  Report Type: 
  Country: TR (occurrence: TR)
  Receive Date: 20121012
  Receipt Date: 20121116
  Transmission Date: 20130627
  Serious: Yes (Life-Threatening, Hospitalization, Other)
  Sender: FDA-Public Use
  Company Number: TR-B.I. PHARMACEUTICALS,INC./RIDGEFIELD-2012-AP-00862TK

PATIENT
  Sex: Female
  Weight: 45 kg

DRUGS (6)
  1. PRADAXA [Suspect]
     Indication: ATRIAL FIBRILLATION
     Dosage: 220 mg
     Route: 048
     Dates: start: 201205
  2. PRADAXA [Suspect]
     Indication: TRANSIENT ISCHAEMIC ATTACK
  3. ASPIRIN [Suspect]
  4. MONOKET LONG [Concomitant]
     Dosage: 1x1
     Route: 048
     Dates: start: 2007
  5. NEROX B [Concomitant]
  6. FOLBIOL [Concomitant]

REACTIONS (2)
  - Haemorrhage subcutaneous [Recovered/Resolved]
  - Erythema [Unknown]
